FAERS Safety Report 5324484-X (Version None)
Quarter: 2007Q2

REPORT INFORMATION
  Report Type: 
  Country: None (occurrence: None)
  Receive Date: 20070508
  Receipt Date: 20070420
  Transmission Date: 20071010
  Serious: Yes (Life-Threatening, Other)
  Sender: FDA-Public Use
  Company Number: 2007US000625

PATIENT
  Age: 16 Year
  Sex: Male

DRUGS (10)
  1. AMBISOME [Suspect]
     Indication: FUNGAL INFECTION
     Dosage: 2.5 MG/KG, UID/QD. IV DRIP
     Route: 041
     Dates: start: 20070304, end: 20070304
  2. VENOGLOBULIN-I [Suspect]
     Indication: BLOOD PRODUCT TRANSFUSION
  3. PANIPENEM (PANIPENEM) [Concomitant]
  4. NEUTROGIN (LENOGRASTIM) [Concomitant]
  5. FAMOTIDINE [Concomitant]
  6. BACTRIM (TRIMETHOPRIM) [Concomitant]
  7. AMPHOTERICIN B [Concomitant]
  8. IMMUNE GLOBULIN INTRAVENOUS (HUMAN) [Concomitant]
  9. HICALIQ (GLUCOSE, POTASSIUM ACETATE, MAGNESIUM SULFATE, ZINC SULFATE, [Concomitant]
  10. HABEKACIN (ARBEKACIN) [Concomitant]

REACTIONS (2)
  - ANAPHYLACTIC SHOCK [None]
  - PURPURA [None]
